FAERS Safety Report 17415295 (Version 4)
Quarter: 2022Q1

REPORT INFORMATION
  Report Type: Spontaneous
  Country: US (occurrence: US)
  Receive Date: 20200213
  Receipt Date: 20220106
  Transmission Date: 20220423
  Serious: Yes (Other)
  Sender: FDA-Public Use
  Company Number: US-PFIZER INC-2020062273

PATIENT
  Age: 65 Year
  Sex: Female
  Weight: 55.34 kg

DRUGS (3)
  1. EXEMESTANE [Suspect]
     Active Substance: EXEMESTANE
     Indication: Intraductal proliferative breast lesion
     Dosage: UNK
  2. TAMOXIFEN [Suspect]
     Active Substance: TAMOXIFEN
     Indication: Intraductal proliferative breast lesion
     Dosage: UNK
  3. ANASTROZOLE [Suspect]
     Active Substance: ANASTROZOLE
     Indication: Intraductal proliferative breast lesion
     Dosage: UNK

REACTIONS (6)
  - Movement disorder [Unknown]
  - Rheumatoid arthritis [Unknown]
  - Hair growth abnormal [Unknown]
  - Arthritis [Unknown]
  - Alopecia [Unknown]
  - COVID-19 [Unknown]
